FAERS Safety Report 8690912 (Version 2)
Quarter: 2013Q4

REPORT INFORMATION
  Report Type: Spontaneous
  Country: US (occurrence: US)
  Receive Date: 20120730
  Receipt Date: 20131107
  Transmission Date: 20140711
  Serious: Yes (Hospitalization)
  Sender: FDA-Public Use
  Company Number: US-009507513-1207USA009950

PATIENT
  Age: 82 Year
  Sex: Male

DRUGS (2)
  1. ZOCOR [Suspect]
     Dosage: 10 MG, HS
     Route: 048
  2. NILUTAMIDE [Suspect]
     Dosage: 300 MG, QD
     Route: 048

REACTIONS (7)
  - Portal vein thrombosis [Unknown]
  - Hepatitis viral [Unknown]
  - Hypotension [Unknown]
  - Drug-induced liver injury [Unknown]
  - Nausea [Unknown]
  - Fatigue [Unknown]
  - Vomiting [Unknown]
